FAERS Safety Report 10085150 (Version 1)
Quarter: 2014Q2

REPORT INFORMATION
  Report Type: Spontaneous
  Country: US (occurrence: US)
  Receive Date: 20140417
  Receipt Date: 20140417
  Transmission Date: 20141212
  Serious: Yes (Other)
  Sender: FDA-Public Use
  Company Number: US-B.I. PHARMACEUTICALS,INC./RIDGEFIELD-2014-BI-17197BP

PATIENT
  Sex: Female
  Weight: 48 kg

DRUGS (18)
  1. SPIRIVA [Suspect]
     Indication: CHRONIC OBSTRUCTIVE PULMONARY DISEASE
     Dosage: 18 MCG
     Route: 055
     Dates: start: 2004
  2. PULMICORT [Concomitant]
     Indication: CHRONIC OBSTRUCTIVE PULMONARY DISEASE
     Dosage: (INHALATION SPRAY)
     Route: 055
  3. ZOLOFT [Concomitant]
     Indication: DEPRESSION
     Route: 048
  4. PREDNISONE [Concomitant]
     Route: 048
  5. XANAX [Concomitant]
     Indication: ANXIETY
     Route: 048
  6. HYDROCODONE [Concomitant]
     Indication: MUSCULOSKELETAL CHEST PAIN
     Route: 048
  7. AMBIEN [Concomitant]
     Indication: SLEEP DISORDER
     Dosage: (TABLET)
     Route: 048
  8. ATROVENT [Concomitant]
     Indication: CHRONIC OBSTRUCTIVE PULMONARY DISEASE
     Dosage: (INHALATION SPRAY)
     Route: 055
  9. HYDRALAZINE [Concomitant]
     Indication: HYPERTENSION
     Dosage: (TABLET)
     Route: 048
  10. LIPITOR [Concomitant]
     Indication: BLOOD CHOLESTEROL INCREASED
     Route: 048
  11. ZOFRAN [Concomitant]
     Indication: NAUSEA
     Route: 048
  12. NORVASC [Concomitant]
     Indication: HYPERTENSION
     Route: 048
  13. ASPIRIN [Concomitant]
     Indication: CEREBROVASCULAR ACCIDENT PROPHYLAXIS
     Dosage: 81 MG
     Route: 048
  14. PREVACID [Concomitant]
     Indication: GASTROOESOPHAGEAL REFLUX DISEASE
     Dosage: (CAPSULE)
     Route: 048
  15. TOPROL [Concomitant]
     Indication: HYPERTENSION
     Route: 048
  16. SINGULAIR [Concomitant]
     Route: 048
  17. MULTIVITAMIN [Concomitant]
     Indication: ROUTINE HEALTH MAINTENANCE
     Route: 048
  18. CO-Q-10 [Concomitant]
     Indication: ROUTINE HEALTH MAINTENANCE
     Route: 048

REACTIONS (1)
  - Glaucoma [Not Recovered/Not Resolved]
